FAERS Safety Report 15525699 (Version 11)
Quarter: 2021Q3

REPORT INFORMATION
  Report Type: Report from Study
  Country: FR (occurrence: FR)
  Receive Date: 20181018
  Receipt Date: 20210714
  Transmission Date: 20211014
  Serious: Yes (Death, Life-Threatening, Hospitalization)
  Sender: FDA-Public Use
  Company Number: FR-ROCHE-2129155

PATIENT
  Age: 79 Year
  Sex: Female
  Weight: 75 kg

DRUGS (104)
  1. DOXORUBICIN [Suspect]
     Active Substance: DOXORUBICIN
     Indication: DIFFUSE LARGE B-CELL LYMPHOMA
     Dosage: DATE OF MOST RECENT DOSE 99 MG OF DOXORUBICIN PRIOR TO INTESTINAL PERFORATION: 30/MAY/2018 99 MG AND
     Route: 042
     Dates: start: 20180530
  2. PLACEBO [Suspect]
     Active Substance: UNSPECIFIED INGREDIENT
     Indication: DIFFUSE LARGE B-CELL LYMPHOMA
     Route: 042
     Dates: start: 20180530
  3. PREDNISONE. [Concomitant]
     Active Substance: PREDNISONE
     Dates: start: 20180516, end: 20180517
  4. FUCIDINE [Concomitant]
     Dosage: ANTI INFECTIVE
     Route: 048
     Dates: end: 20180515
  5. BACTRIM [Concomitant]
     Active Substance: SULFAMETHOXAZOLE\TRIMETHOPRIM
     Dosage: ANTI INFECTIVE?800 UNIT UNKNOWN
     Route: 048
     Dates: start: 20180515, end: 20180603
  6. NOVORAPID [Concomitant]
     Active Substance: INSULIN ASPART
     Indication: HYPERGLYCAEMIA
     Route: 058
     Dates: start: 20180530, end: 20180530
  7. RINGERS LACTATE [Concomitant]
     Active Substance: CALCIUM CHLORIDE\POTASSIUM CHLORIDE\SODIUM LACTATE
     Dosage: IONIC SOLUTION
     Route: 042
     Dates: start: 20180608, end: 20180608
  8. BISOPROLOL [Concomitant]
     Active Substance: BISOPROLOL
     Route: 048
     Dates: start: 20180604, end: 20180613
  9. LORATADINE. [Concomitant]
     Active Substance: LORATADINE
     Route: 048
     Dates: start: 20180621
  10. AMIKACINE [Concomitant]
     Active Substance: AMIKACIN
     Dosage: ANTI INFECTIVE
     Route: 042
     Dates: start: 20180728, end: 20180730
  11. LOPERAMIDE [Concomitant]
     Active Substance: LOPERAMIDE
     Dosage: ANTI DIARRHEA
     Route: 048
     Dates: start: 20180703
  12. ACUPAN [Concomitant]
     Active Substance: NEFOPAM HYDROCHLORIDE
     Indication: PAIN
     Route: 042
     Dates: start: 20180603, end: 20180621
  13. ZARZIO [Concomitant]
     Active Substance: FILGRASTIM
     Dosage: ANTI NEUTROPENIA
     Route: 042
     Dates: start: 20180605, end: 20180612
  14. TAHOR [Concomitant]
     Active Substance: ATORVASTATIN CALCIUM
     Indication: DYSLIPIDAEMIA
     Route: 048
     Dates: start: 20180517, end: 20180711
  15. UROKINASE [Concomitant]
     Active Substance: UROKINASE
     Indication: THROMBOLYSIS
     Route: 042
     Dates: start: 20180920, end: 20180920
  16. POLATUZUMAB VEDOTIN. [Suspect]
     Active Substance: POLATUZUMAB VEDOTIN
     Indication: DIFFUSE LARGE B-CELL LYMPHOMA
     Dosage: START DATE OF MOST RECENT DOSE OF STUDY DRUG PRIOR TO SAE 19/JUL/2018 (140 MG)
     Route: 042
     Dates: start: 20180530
  17. PANTOPRAZOLE [Concomitant]
     Active Substance: PANTOPRAZOLE
     Route: 042
     Dates: start: 20180603, end: 20180719
  18. PANTOPRAZOLE [Concomitant]
     Active Substance: PANTOPRAZOLE
     Route: 042
     Dates: start: 20180806, end: 20180806
  19. PREVISCAN (FRANCE) [Concomitant]
     Active Substance: FLUINDIONE
     Indication: ATRIAL FIBRILLATION
     Route: 048
     Dates: end: 20180603
  20. LASILIX [Concomitant]
     Active Substance: FUROSEMIDE
     Route: 048
     Dates: start: 20180604, end: 20180605
  21. LASILIX [Concomitant]
     Active Substance: FUROSEMIDE
     Route: 048
     Dates: end: 20180522
  22. LASILIX [Concomitant]
     Active Substance: FUROSEMIDE
     Route: 048
     Dates: start: 20180829, end: 20180829
  23. SPASFON (FRANCE) [Concomitant]
     Active Substance: PHLOROGLUCINOL\1,3,5-TRIMETHOXYBENZENE
     Indication: ABDOMINAL PAIN
     Route: 042
     Dates: start: 20180531, end: 20180531
  24. VANCOMYCINE [Concomitant]
     Active Substance: VANCOMYCIN
     Dosage: ANTI INFECTIVE
     Route: 042
     Dates: start: 20180603, end: 20180615
  25. CANCIDAS [Concomitant]
     Active Substance: CASPOFUNGIN ACETATE
     Dosage: ANTI INFECTIVE
     Route: 042
     Dates: start: 20180824, end: 20180829
  26. HEPARINE SODIQUE [Concomitant]
     Active Substance: HEPARIN SODIUM
     Dosage: ANTI THROMBOSIS
     Route: 042
     Dates: start: 20180603, end: 20180607
  27. BISOPROLOL [Concomitant]
     Active Substance: BISOPROLOL
     Route: 048
     Dates: start: 20180614, end: 20180622
  28. POLARAMINE [Concomitant]
     Active Substance: DEXCHLORPHENIRAMINE MALEATE
     Dosage: ANTI ALLERGY
     Route: 042
     Dates: start: 20180618, end: 20180711
  29. ALBUMINE [Concomitant]
     Active Substance: ALBUMIN HUMAN
     Dosage: INCREASE OF BLOOD VOLUME
     Route: 042
     Dates: start: 20180607, end: 20180611
  30. ZYLORIC [Concomitant]
     Active Substance: ALLOPURINOL
     Route: 048
     Dates: start: 20180518, end: 20180711
  31. WELLVONE [Concomitant]
     Active Substance: ATOVAQUONE
     Route: 048
     Dates: start: 20180831, end: 20180920
  32. FOLINORAL [Concomitant]
     Active Substance: LEUCOVORIN CALCIUM
     Route: 048
     Dates: start: 20180517, end: 20180824
  33. DIFFU K [Concomitant]
     Active Substance: POTASSIUM CHLORIDE
     Indication: HYPOKALAEMIA
     Route: 048
     Dates: start: 20181025, end: 20181102
  34. TITANOREINE [Concomitant]
     Active Substance: CARRAGEENAN\TITANIUM\ZINC
     Route: 054
     Dates: start: 20180515, end: 20180522
  35. MORPHINE [Concomitant]
     Active Substance: MORPHINE
     Route: 042
     Dates: start: 20180606, end: 20180606
  36. TIENAM [Concomitant]
     Active Substance: CILASTATIN SODIUM\IMIPENEM
     Indication: ERYSIPELAS
     Dosage: 500/500 MG
     Route: 042
     Dates: start: 20180603, end: 20180618
  37. TIENAM [Concomitant]
     Active Substance: CILASTATIN SODIUM\IMIPENEM
     Route: 042
     Dates: start: 20180914, end: 20180920
  38. INNOHEP [Concomitant]
     Active Substance: TINZAPARIN SODIUM
     Route: 058
     Dates: start: 20180529, end: 20180531
  39. FOLINATE DE CALCIUM [Concomitant]
     Active Substance: LEUCOVORIN CALCIUM
     Dosage: ANTI VITAMINE B6 DEPLETION
     Route: 048
     Dates: start: 20180517
  40. ZELITREX [Concomitant]
     Active Substance: VALACYCLOVIR HYDROCHLORIDE
     Dosage: ANTI INFECTIVES
     Route: 048
     Dates: start: 20180515
  41. MESNA. [Concomitant]
     Active Substance: MESNA
     Dosage: PREMEDICATINON, PROPHYLAXIS FOR HEMORRHAGIC CYSTITIS
     Dates: start: 20180530, end: 20180921
  42. DIOSMECTITE [Concomitant]
     Active Substance: MONTMORILLONITE
     Dosage: ANTI DIARRHEA
     Route: 048
     Dates: start: 20180626, end: 20180703
  43. AERIUS [Concomitant]
     Route: 048
     Dates: start: 20180522, end: 20180921
  44. IMODIUM [Concomitant]
     Active Substance: LOPERAMIDE HYDROCHLORIDE
     Route: 048
     Dates: start: 20180703
  45. BINOCRIT [Concomitant]
     Active Substance: ERYTHROPOIETIN
     Indication: ANAEMIA
     Route: 058
     Dates: start: 20180720, end: 20181012
  46. RITUXIMAB. [Suspect]
     Active Substance: RITUXIMAB
     Indication: DIFFUSE LARGE B-CELL LYMPHOMA
     Dosage: DATE OF MOST RECENT DOSE OF RITUXIMAB PRIOR TO FIRST OCCURRENCE OF DIGESTIVE HEMORRHAGE: 22/MAY/2018
     Route: 042
     Dates: start: 20180522
  47. PREDNISONE. [Suspect]
     Active Substance: PREDNISONE
     Indication: DIFFUSE LARGE B-CELL LYMPHOMA
     Dosage: DATE OF MOST RECENT DOSE 80 MG OF DOXORUBICIN PRIOR TO DIGESTIVE HEMORRHAGE: 22/MAY/2018 AND PRIOR T
     Route: 042
     Dates: start: 20180522
  48. CRESTOR [Concomitant]
     Active Substance: ROSUVASTATIN CALCIUM
     Indication: DYSLIPIDAEMIA
     Route: 048
     Dates: end: 20180516
  49. DEXERYL (FRANCE) [Concomitant]
     Active Substance: GLYCERIN\MINERAL OIL\PETROLATUM
     Indication: DRY SKIN
     Route: 058
     Dates: start: 20180515, end: 20180521
  50. VANCOMYCINE [Concomitant]
     Active Substance: VANCOMYCIN
     Dosage: ANTI INFECTIVE
     Route: 042
     Dates: start: 20180914, end: 20180917
  51. BISOPROLOL [Concomitant]
     Active Substance: BISOPROLOL
     Route: 048
     Dates: end: 20180522
  52. BISOPROLOL [Concomitant]
     Active Substance: BISOPROLOL
     Route: 048
     Dates: start: 20180625
  53. TAZOCILLINE [Concomitant]
     Active Substance: PIPERACILLIN SODIUM\TAZOBACTAM SODIUM
     Dosage: ANTI INFECTIVES
     Route: 042
     Dates: start: 20180528, end: 20180531
  54. FASTURTEC [Concomitant]
     Active Substance: RASBURICASE
     Dosage: ANTI LYSIS SYNDROM
     Route: 042
     Dates: start: 20180521, end: 20180521
  55. ACUPAN [Concomitant]
     Active Substance: NEFOPAM HYDROCHLORIDE
     Route: 048
     Dates: start: 20180620, end: 20180914
  56. ZYLORIC [Concomitant]
     Active Substance: ALLOPURINOL
     Route: 048
     Dates: start: 20180727, end: 20180806
  57. ESIDREX [Concomitant]
     Active Substance: HYDROCHLOROTHIAZIDE
     Indication: HYPERTENSION
     Route: 048
     Dates: start: 20180518, end: 20180520
  58. ZARZIO [Concomitant]
     Active Substance: FILGRASTIM
     Dosage: ANTI NEUTROPENIA
     Route: 058
     Dates: start: 20180731, end: 20180805
  59. AERIUS [Concomitant]
     Dosage: ANTI ALLERGY
     Route: 048
     Dates: start: 20180516, end: 20180522
  60. BACTRIM [Concomitant]
     Active Substance: SULFAMETHOXAZOLE\TRIMETHOPRIM
  61. CYCLOPHOSPHAMIDE. [Suspect]
     Active Substance: CYCLOPHOSPHAMIDE
     Indication: DIFFUSE LARGE B-CELL LYMPHOMA
     Dosage: DATE OF MOST RECENT DOSE 1475 MG OF CYCLOPHOSPHAMIDE PRIOR TO INTESTINAL PERFORATION: 30/MAY/2018 (1
     Route: 042
     Dates: start: 20180530
  62. PANTOPRAZOLE [Concomitant]
     Active Substance: PANTOPRAZOLE
     Route: 048
     Dates: start: 20180522, end: 20180523
  63. ECAZIDE [Concomitant]
     Active Substance: CAPTOPRIL\HYDROCHLOROTHIAZIDE
     Route: 048
     Dates: start: 20180518, end: 20180520
  64. LASILIX [Concomitant]
     Active Substance: FUROSEMIDE
     Indication: OEDEMA
     Route: 042
     Dates: start: 20180531, end: 20180531
  65. VANCOMYCINE [Concomitant]
     Active Substance: VANCOMYCIN
     Dosage: ANTI INFECTIVE
     Route: 042
     Dates: start: 20180829, end: 20180829
  66. INNOHEP [Concomitant]
     Active Substance: TINZAPARIN SODIUM
     Route: 058
     Dates: start: 20180516, end: 20180522
  67. INNOHEP [Concomitant]
     Active Substance: TINZAPARIN SODIUM
     Dates: start: 20180514
  68. KAYEXALATE [Concomitant]
     Active Substance: SODIUM POLYSTYRENE SULFONATE
     Indication: HYPERKALAEMIA
     Route: 048
     Dates: start: 20180529, end: 20180529
  69. ISOFUNDINE [Concomitant]
     Active Substance: CALCIUM CHLORIDE\MAGNESIUM CHLORIDE\MALIC ACID\POTASSIUM CHLORIDE\SODIUM ACETATE\SODIUM CHLORIDE
     Route: 042
     Dates: start: 20180603, end: 20180606
  70. POTASSIUM CHLORIDE. [Concomitant]
     Active Substance: POTASSIUM CHLORIDE
     Indication: HYPOKALAEMIA
     Route: 042
     Dates: start: 20180608, end: 20180613
  71. BISOPROLOL [Concomitant]
     Active Substance: BISOPROLOL
     Indication: ATRIAL FIBRILLATION
     Route: 048
     Dates: start: 20180529, end: 20180531
  72. LORATADINE. [Concomitant]
     Active Substance: LORATADINE
     Route: 048
     Dates: start: 20180522
  73. SPECIAFOLDINE [Concomitant]
     Active Substance: FOLIC ACID
     Dosage: ANTI HEMOLYTIC ANEMIA
     Route: 048
     Dates: end: 20180522
  74. FOLINORAL [Concomitant]
     Active Substance: LEUCOVORIN CALCIUM
     Route: 048
     Dates: start: 20180920
  75. ECAZIDE [Concomitant]
     Active Substance: CAPTOPRIL\HYDROCHLOROTHIAZIDE
     Indication: HYPERTENSION
     Route: 048
     Dates: end: 20180603
  76. MORPHINE [Concomitant]
     Active Substance: MORPHINE
     Indication: PAIN
     Route: 042
     Dates: start: 20180531, end: 20180531
  77. CANCIDAS [Concomitant]
     Active Substance: CASPOFUNGIN ACETATE
     Dosage: INFECTION OF CANDIDA FEKIR
     Route: 042
     Dates: start: 20180604, end: 20180617
  78. ATORVASTATINE [Concomitant]
     Active Substance: ATORVASTATIN
     Indication: DYSLIPIDAEMIA
     Route: 048
     Dates: start: 20180517
  79. PARACETAMOL [Concomitant]
     Active Substance: ACETAMINOPHEN
     Indication: PREMEDICATION
     Dosage: PREMEDICATION
     Route: 048
     Dates: start: 20180522, end: 20180921
  80. ZOPHREN [Concomitant]
     Active Substance: ONDANSETRON
     Dosage: PREMEDICATION
     Route: 048
     Dates: start: 20180530, end: 20180921
  81. RACECADOTRIL [Concomitant]
     Active Substance: RACECADOTRIL
     Route: 048
     Dates: start: 20180626
  82. ACIDE FOLIQUE [Concomitant]
     Active Substance: FOLIC ACID
     Route: 048
     Dates: start: 20180515
  83. PANTOPRAZOLE [Concomitant]
     Active Substance: PANTOPRAZOLE
     Route: 048
     Dates: start: 20180522, end: 20180531
  84. PANTOPRAZOLE [Concomitant]
     Active Substance: PANTOPRAZOLE
     Route: 048
     Dates: start: 20180809, end: 20180914
  85. PREDNISONE. [Concomitant]
     Active Substance: PREDNISONE
     Indication: LYMPHOMA
     Route: 048
     Dates: start: 20180516, end: 20180517
  86. LASILIX [Concomitant]
     Active Substance: FUROSEMIDE
     Route: 042
     Dates: start: 20180529, end: 20180530
  87. LASILIX [Concomitant]
     Active Substance: FUROSEMIDE
     Route: 048
     Dates: start: 20180830, end: 20180904
  88. TRAMADOL. [Concomitant]
     Active Substance: TRAMADOL
     Indication: PAIN
     Route: 042
     Dates: start: 20180531, end: 20180531
  89. TRAMADOL. [Concomitant]
     Active Substance: TRAMADOL
     Route: 048
     Dates: start: 20180717, end: 20180806
  90. TIENAM [Concomitant]
     Active Substance: CILASTATIN SODIUM\IMIPENEM
     Dosage: 500/500 MG
     Route: 042
     Dates: start: 20180625, end: 20180628
  91. INNOHEP [Concomitant]
     Active Substance: TINZAPARIN SODIUM
     Route: 058
     Dates: start: 20180607, end: 20180805
  92. LORATADINE. [Concomitant]
     Active Substance: LORATADINE
     Dosage: ANTI ALLERGY
     Route: 048
     Dates: start: 20180516, end: 20180522
  93. DIPROSONE [Concomitant]
     Active Substance: BETAMETHASONE DIPROPIONATE
     Indication: DRY SKIN
     Route: 061
     Dates: start: 20180618, end: 20180711
  94. ZYLORIC [Concomitant]
     Active Substance: ALLOPURINOL
     Indication: HYPERURICAEMIA
     Route: 048
     Dates: end: 20180517
  95. EXACYL [Concomitant]
     Active Substance: TRANEXAMIC ACID
     Indication: HAEMORRHAGE
     Route: 042
     Dates: start: 20180806, end: 20180806
  96. PANTOPRAZOLE [Concomitant]
     Active Substance: PANTOPRAZOLE
     Indication: GASTRIC ULCER
     Dates: start: 20180514
  97. SOLU?MEDROL [Concomitant]
     Active Substance: METHYLPREDNISOLONE SODIUM SUCCINATE
     Indication: LYMPHOMA
     Route: 042
     Dates: start: 20180518, end: 20180522
  98. LASILIX [Concomitant]
     Active Substance: FUROSEMIDE
     Indication: HYPERTENSION
     Route: 042
     Dates: start: 20180605, end: 20180609
  99. INNOHEP [Concomitant]
     Active Substance: TINZAPARIN SODIUM
     Route: 058
     Dates: start: 20180915, end: 201811
  100. AMIKACINE [Concomitant]
     Active Substance: AMIKACIN
     Dosage: ANTI INFECTIVE?DROPS
     Route: 042
     Dates: start: 20180531, end: 20180531
  101. AUGMENTIN [Concomitant]
     Active Substance: AMOXICILLIN\CLAVULANATE POTASSIUM
     Dosage: ANTI INFECTIVES
     Dates: end: 20180528
  102. PENTACARINAT [Concomitant]
     Active Substance: PENTAMIDINE ISETHIONATE
     Dates: start: 20180923
  103. PRIMPERAN [Concomitant]
     Active Substance: METOCLOPRAMIDE HYDROCHLORIDE
     Route: 048
     Dates: start: 20180720, end: 20180728
  104. OROKEN [Concomitant]
     Active Substance: CEFIXIME
     Route: 048
     Dates: start: 20181025, end: 20181104

REACTIONS (6)
  - Gastrointestinal haemorrhage [Recovered/Resolved]
  - Hypovolaemia [Recovered/Resolved]
  - Intestinal perforation [Recovered/Resolved]
  - Gastrointestinal haemorrhage [Recovered/Resolved]
  - Pulmonary embolism [Recovered/Resolved]
  - Infection [Recovered/Resolved]

NARRATIVE: CASE EVENT DATE: 20180522
